FAERS Safety Report 19913836 (Version 2)
Quarter: 2021Q4

REPORT INFORMATION
  Report Type: Spontaneous
  Country: BR (occurrence: BR)
  Receive Date: 20211004
  Receipt Date: 20211118
  Transmission Date: 20220304
  Serious: Yes (Hospitalization, Other)
  Sender: FDA-Public Use
  Company Number: BR-BAYER-2021A218113

PATIENT
  Age: 4 Month
  Sex: Male
  Weight: 8 kg

DRUGS (1)
  1. XOFIGO [Suspect]
     Active Substance: RADIUM RA-223 DICHLORIDE
     Dosage: SINGLE ADMINISTRATION OF XOFIGO 6.6/6 MBQ/ML, DOSE CALCULATED FOR AN ADULT OF ABOUT 65 KG
     Dates: start: 20210924, end: 20210924

REACTIONS (5)
  - Wrong patient received product [None]
  - Product administered to patient of inappropriate age [None]
  - Accidental overdose [None]
  - Pancytopenia [None]
  - Blood pressure fluctuation [Not Recovered/Not Resolved]

NARRATIVE: CASE EVENT DATE: 20210924
